FAERS Safety Report 5947916-2 (Version None)
Quarter: 2008Q4

REPORT INFORMATION
  Report Type: 
  Country: None (occurrence: None)
  Receive Date: 20081111
  Receipt Date: 20080827
  Transmission Date: 20090506
  Serious: No
  Sender: FDA-Public Use
  Company Number: A0744721A

PATIENT
  Age: 48 Year
  Sex: Male

DRUGS (7)
  1. TREXIMET [Suspect]
     Indication: MIGRAINE
     Dosage: 1TAB AS REQUIRED
     Route: 048
     Dates: start: 20080819, end: 20080819
  2. IMITREX [Suspect]
     Indication: MIGRAINE
     Dosage: 100MG AS REQUIRED
     Route: 048
  3. IMITREX [Concomitant]
  4. DARVON [Concomitant]
  5. NADOLOL [Concomitant]
  6. MINOCIN [Concomitant]
  7. ACIPHEX [Concomitant]

REACTIONS (4)
  - DRUG INEFFECTIVE [None]
  - FEELING HOT [None]
  - FLUSHING [None]
  - OVERDOSE [None]
